FAERS Safety Report 4543166-5 (Version None)
Quarter: 2005Q1

REPORT INFORMATION
  Report Type: 
  Country: None (occurrence: None)
  Receive Date: 20050103
  Receipt Date: 20040621
  Transmission Date: 20050727
  Serious: Yes (Hospitalization)
  Sender: FDA-Public Use
  Company Number: FR-NOVOPROD-237767

PATIENT
  Age: 67 Year
  Sex: Female

DRUGS (5)
  1. INSULATARD NPH HUMAN [Suspect]
     Indication: INSULIN-REQUIRING TYPE II DIABETES MELLITUS
     Dosage: UNK, UNK
     Route: 058
     Dates: start: 20040505
  2. GLUCOPHAG [Concomitant]
     Dosage: 500 MG, TID
     Dates: start: 19990115
  3. AMAREL [Concomitant]
     Dosage: 1 TAB, QD
     Dates: end: 20040503
  4. TRANXENE [Concomitant]
     Dosage: 1 TAB, QD
     Route: 048
     Dates: start: 19990115
  5. SEROPRAM [Concomitant]
     Dosage: 1 TAB, QD
     Route: 048
     Dates: start: 19990115

REACTIONS (1)
  - LEUKOCYTOCLASTIC VASCULITIS [None]
